FAERS Safety Report 19260009 (Version 3)
Quarter: 2021Q4

REPORT INFORMATION
  Report Type: Report from Study
  Country: US (occurrence: US)
  Receive Date: 20210514
  Receipt Date: 20211005
  Transmission Date: 20220303
  Serious: Yes (Hospitalization)
  Sender: FDA-Public Use
  Company Number: US-GLAXOSMITHKLINE-US2021GSK057845

PATIENT
  Age: 58 Year
  Sex: Male
  Weight: 106 kg

DRUGS (10)
  1. NIRAPARIB [Suspect]
     Active Substance: NIRAPARIB
     Indication: Pancreatic carcinoma
     Dosage: 100 MG, BID
     Route: 048
     Dates: start: 20210210, end: 20210214
  2. NIRAPARIB [Suspect]
     Active Substance: NIRAPARIB
     Dosage: UNK
     Route: 048
     Dates: start: 20210224
  3. NIRAPARIB [Suspect]
     Active Substance: NIRAPARIB
     Dosage: 100 MG, QD
     Route: 048
     Dates: start: 20210305, end: 20210305
  4. NIRAPARIB [Suspect]
     Active Substance: NIRAPARIB
     Dosage: 100 MG, QD
     Route: 048
     Dates: start: 20210331
  5. NIRAPARIB [Suspect]
     Active Substance: NIRAPARIB
     Dosage: 100 MG, QD
     Route: 048
     Dates: start: 20210412, end: 20210417
  6. NIRAPARIB [Suspect]
     Active Substance: NIRAPARIB
     Dosage: UNK
     Route: 048
     Dates: start: 20210422
  7. NIRAPARIB [Suspect]
     Active Substance: NIRAPARIB
     Dosage: 100 MG, QD
     Route: 048
     Dates: start: 20210524
  8. DOSTARLIMAB [Suspect]
     Active Substance: DOSTARLIMAB
     Indication: Pancreatic carcinoma
     Dosage: 500 MG, Z,Q3WK
     Route: 042
     Dates: start: 20210210, end: 20210210
  9. DOSTARLIMAB [Suspect]
     Active Substance: DOSTARLIMAB
     Dosage: 1000 MG, Z(Q6W)
     Route: 042
     Dates: start: 20210504, end: 20210504
  10. DOSTARLIMAB [Suspect]
     Active Substance: DOSTARLIMAB
     Dosage: 1000 MG, Z(Q6W)
     Route: 042
     Dates: start: 20210524, end: 20210524

REACTIONS (8)
  - Rectal abscess [Unknown]
  - Condition aggravated [Unknown]
  - Abdominal pain [Recovered/Resolved]
  - Abdominal pain [Recovered/Resolved]
  - Abdominal infection [Recovered/Resolved]
  - Abdominal infection [Recovered/Resolved]
  - Anorectal infection [Recovered/Resolved]
  - Abdominal infection [Unknown]

NARRATIVE: CASE EVENT DATE: 20210215
